FAERS Safety Report 10538927 (Version 1)
Quarter: 2014Q4

REPORT INFORMATION
  Report Type: Spontaneous
  Country: ES (occurrence: ES)
  Receive Date: 20141023
  Receipt Date: 20141023
  Transmission Date: 20150529
  Serious: Yes (Other)
  Sender: FDA-Public Use
  Company Number: ES-GLAXOSMITHKLINE-ES2014006677

PATIENT

DRUGS (1)
  1. DUODART [Suspect]
     Active Substance: DUTASTERIDE\TAMSULOSIN
     Indication: BENIGN PROSTATIC HYPERPLASIA
     Dosage: 1/24 HOURS
     Route: 048
     Dates: start: 20140917, end: 20140922

REACTIONS (2)
  - Haematuria [Unknown]
  - Melaena [Unknown]

NARRATIVE: CASE EVENT DATE: 20140924
